FAERS Safety Report 6180202-7 (Version None)
Quarter: 2009Q2

REPORT INFORMATION
  Report Type: 
  Country: None (occurrence: None)
  Receive Date: 20090505
  Receipt Date: 20090501
  Transmission Date: 20091009
  Serious: Yes (Hospitalization, Other)
  Sender: FDA-Public Use
  Company Number: US-RB-014941-09

PATIENT
  Age: 47 Year
  Sex: Female

DRUGS (8)
  1. SUBOXONE [Suspect]
     Route: 060
     Dates: start: 20090330, end: 20090430
  2. ACETAMINOPHEN [Concomitant]
     Indication: PAIN
     Dosage: UNKNOWN DOSE
  3. TRAMADOL HCL [Concomitant]
     Indication: PAIN
     Dosage: UNKNOWN DOSE
  4. IBUPROFEN [Concomitant]
     Indication: INFLAMMATION
     Dosage: UNKNOWN DOSE
  5. NEURONTIN [Concomitant]
     Indication: PAIN
     Dosage: UNKNOWN DOSE
  6. NEURONTIN [Concomitant]
     Indication: INFLAMMATION
     Dosage: UNKNOWN DOSE
  7. KLONOPIN [Concomitant]
     Indication: ANXIETY
     Dosage: UNKNOWN DOSE
  8. AMITRIPTLINE HYDROCHLORIDE TAB [Concomitant]
     Indication: DEPRESSION
     Dosage: UNKNOWN DOSE

REACTIONS (4)
  - HALLUCINATION [None]
  - PAIN [None]
  - PULMONARY OEDEMA [None]
  - WITHDRAWAL SYNDROME [None]
